FAERS Safety Report 20843969 (Version 1)
Quarter: 2022Q2

REPORT INFORMATION
  Report Type: Spontaneous
  Country: US (occurrence: None)
  Receive Date: 20220517
  Receipt Date: 20220517
  Transmission Date: 20220720
  Serious: Yes (Death)
  Sender: FDA-Public Use
  Company Number: None

PATIENT
  Sex: Male

DRUGS (11)
  1. TAFINLAR [Suspect]
     Active Substance: DABRAFENIB MESYLATE
     Indication: Neoplasm malignant
     Route: 048
     Dates: start: 20220512
  2. MEKINIST [Suspect]
     Active Substance: TRAMETINIB DIMETHYL SULFOXIDE
     Indication: Neoplasm malignant
     Route: 048
     Dates: start: 20220512
  3. ALBUEROL AER HFA [Concomitant]
  4. ANASTROZOLE TAB [Concomitant]
  5. CYCLOBENZAPR TAB [Concomitant]
  6. LIDOCAINE PAD [Concomitant]
  7. LIVALO TAB [Concomitant]
  8. MEKINIST [Concomitant]
     Active Substance: TRAMETINIB DIMETHYL SULFOXIDE
  9. TAMSULOSIN [Concomitant]
     Active Substance: TAMSULOSIN
  10. TRAMADOL HCL TAB [Concomitant]
  11. VALACYCLOVIR TAB [Concomitant]

REACTIONS (1)
  - Death [None]
